FAERS Safety Report 25439212 (Version 2)
Quarter: 2025Q2

REPORT INFORMATION
  Report Type: Spontaneous
  Country: BR (occurrence: BR)
  Receive Date: 20250616
  Receipt Date: 20250625
  Transmission Date: 20250716
  Serious: Yes (Other)
  Sender: SANDOZ
  Company Number: BR-SANDOZ-SDZ2025BR041214

PATIENT
  Sex: Female

DRUGS (4)
  1. COSENTYX [Suspect]
     Active Substance: SECUKINUMAB
     Indication: Psoriasis
     Route: 065
  2. METFORMIN HYDROCHLORIDE [Suspect]
     Active Substance: METFORMIN HYDROCHLORIDE
     Indication: Glucose tolerance impaired
     Route: 065
  3. HYDROCHLOROTHIAZIDE [Suspect]
     Active Substance: HYDROCHLOROTHIAZIDE
     Indication: Hypertension
     Route: 065
  4. LOSARTAN [Suspect]
     Active Substance: LOSARTAN
     Indication: Hypertension
     Route: 065
     Dates: start: 20250404

REACTIONS (27)
  - Wound [Recovering/Resolving]
  - Immunodeficiency [Recovering/Resolving]
  - Psoriasis [Recovering/Resolving]
  - Memory impairment [Recovering/Resolving]
  - Fatigue [Recovering/Resolving]
  - Pruritus [Recovering/Resolving]
  - Menstruation irregular [Recovering/Resolving]
  - Hyperaemia [Recovering/Resolving]
  - Viral infection [Recovering/Resolving]
  - Exposure via skin contact [Recovering/Resolving]
  - Discomfort [Recovering/Resolving]
  - Injection site pain [Recovering/Resolving]
  - Fear [Recovering/Resolving]
  - Gait disturbance [Recovering/Resolving]
  - Wound secretion [Recovering/Resolving]
  - Skin fissures [Recovering/Resolving]
  - Loss of personal independence in daily activities [Unknown]
  - Heavy menstrual bleeding [Unknown]
  - Anxiety [Recovering/Resolving]
  - Haematocrit decreased [Recovering/Resolving]
  - Paraesthesia [Recovering/Resolving]
  - Headache [Unknown]
  - Poor quality sleep [Recovering/Resolving]
  - Pain [Recovering/Resolving]
  - Arthralgia [Recovering/Resolving]
  - Drug ineffective [Unknown]
  - Device use error [Unknown]
